FAERS Safety Report 7517978-X (Version None)
Quarter: 2011Q2

REPORT INFORMATION
  Report Type: 
  Country: None (occurrence: None)
  Receive Date: 20110531
  Receipt Date: 20110531
  Transmission Date: 20111010
  Serious: No
  Sender: FDA-Public Use
  Company Number: None

PATIENT

DRUGS (1)
  1. LIQUID BANDAGE CARE ONE [Suspect]
     Indication: EXCORIATION

REACTIONS (5)
  - SCREAMING [None]
  - SKIN DISCOLOURATION [None]
  - PRODUCT QUALITY ISSUE [None]
  - PAIN [None]
  - PRODUCT LABEL ISSUE [None]
